FAERS Safety Report 4623464-7 (Version None)
Quarter: 2005Q1

REPORT INFORMATION
  Report Type: 
  Country: None (occurrence: None)
  Receive Date: 20050330
  Receipt Date: 20050314
  Transmission Date: 20050727
  Serious: No
  Sender: FDA-Public Use
  Company Number: 2005AP01752

PATIENT
  Age: 79 Year
  Sex: Female
  Weight: 38 kg

DRUGS (12)
  1. OMEPRAZOLE [Suspect]
     Indication: GASTRIC ULCER
     Dates: start: 20050303, end: 20050309
  2. NEOPHAGEN [Concomitant]
  3. PROHEPARUM [Concomitant]
  4. ROHYPNOL [Concomitant]
  5. LECICARBON [Concomitant]
  6. ALDACTONE [Concomitant]
  7. CAPTOPRIL [Concomitant]
  8. LACTULOSE [Concomitant]
  9. RHUBARB [Concomitant]
  10. MAGNESIUM OXIDE [Concomitant]
  11. YODEL [Concomitant]
  12. HUMULIN [Concomitant]

REACTIONS (3)
  - PLATELET COUNT DECREASED [None]
  - RED BLOOD CELL COUNT DECREASED [None]
  - WHITE BLOOD CELL COUNT DECREASED [None]
